FAERS Safety Report 7369687-8 (Version None)
Quarter: 2011Q1

REPORT INFORMATION
  Report Type: 
  Country: None (occurrence: None)
  Receive Date: 20110323
  Receipt Date: 20110105
  Transmission Date: 20110831
  Serious: Yes (Life-Threatening, Hospitalization)
  Sender: FDA-Public Use
  Company Number: GXKR2010DK05017

PATIENT
  Sex: Female
  Weight: 80 kg

DRUGS (3)
  1. METHOTREXATE SANDOZ [Suspect]
     Indication: PSORIASIS
     Dosage: 15 MG, QW
     Route: 048
     Dates: start: 20100303, end: 20100417
  2. MAGNYL [Concomitant]
     Indication: ANTICOAGULANT THERAPY
     Dosage: 75 MG, QD
     Route: 048
     Dates: start: 20080901
  3. FOLIC ACID [Concomitant]

REACTIONS (13)
  - LIVER DISORDER [None]
  - WEIGHT DECREASED [None]
  - HYPERKERATOSIS PALMARIS AND PLANTARIS [None]
  - RENAL IMPAIRMENT [None]
  - SKIN ULCER [None]
  - LEUKOPENIA [None]
  - MOUTH ULCERATION [None]
  - HEPATIC ENZYME INCREASED [None]
  - DIARRHOEA [None]
  - TOXICITY TO VARIOUS AGENTS [None]
  - PSORIASIS [None]
  - RENAL FAILURE [None]
  - ANAEMIA [None]
